FAERS Safety Report 4733557-1 (Version None)
Quarter: 2005Q3

REPORT INFORMATION
  Report Type: 
  Country: None (occurrence: None)
  Receive Date: 20050729
  Receipt Date: 20050523
  Transmission Date: 20060218
  Serious: No
  Sender: FDA-Public Use
  Company Number: COT_0077_2005

PATIENT
  Age: 40 Year
  Sex: Male
  Weight: 90.7194 kg

DRUGS (1)
  1. VENTAVIS [Suspect]
     Indication: PULMONARY HYPERTENSION
     Dosage: 5 MCG Q2HR IH
     Route: 055
     Dates: start: 20050518

REACTIONS (4)
  - ASTHENIA [None]
  - FLUSHING [None]
  - HEADACHE [None]
  - INFLUENZA LIKE ILLNESS [None]
